FAERS Safety Report 10520016 (Version 2)
Quarter: 2014Q4

REPORT INFORMATION
  Report Type: Spontaneous
  Country: JP (occurrence: JP)
  Receive Date: 20141015
  Receipt Date: 20141024
  Transmission Date: 20150528
  Serious: Yes (Other)
  Sender: FDA-Public Use
  Company Number: JP-BRACCO-008501

PATIENT
  Age: 68 Year
  Sex: Male

DRUGS (1)
  1. IOPAMIDOL [Suspect]
     Active Substance: IOPAMIDOL
     Indication: PERCUTANEOUS CORONARY INTERVENTION
     Route: 022

REACTIONS (3)
  - Anaphylactic shock [Recovered/Resolved]
  - Thrombosis in device [None]
  - Arteriospasm coronary [Recovered/Resolved]
